FAERS Safety Report 10654487 (Version 1)
Quarter: 2014Q4

REPORT INFORMATION
  Report Type: Spontaneous
  Country: KR (occurrence: None)
  Receive Date: 20141212
  Receipt Date: 20141212
  Transmission Date: 20150529
  Serious: Yes (Hospitalization)
  Sender: FDA-Public Use
  Company Number: 2014/087

PATIENT
  Age: 20 Year
  Sex: Male

DRUGS (1)
  1. VALPROIC ACID (NO PREF. NAME) [Suspect]
     Active Substance: VALPROIC ACID
     Indication: SEIZURE
     Route: 048

REACTIONS (2)
  - Pneumonitis [None]
  - Blood pH increased [None]
